FAERS Safety Report 10729118 (Version 1)
Quarter: 2015Q1

REPORT INFORMATION
  Report Type: Report from Study
  Country: US (occurrence: US)
  Receive Date: 20150122
  Receipt Date: 20150122
  Transmission Date: 20150721
  Serious: Yes (Hospitalization)
  Sender: FDA-Public Use
  Company Number: US-ROCHE-1520332

PATIENT
  Sex: Female

DRUGS (14)
  1. 5-FLUOROURACIL [Suspect]
     Active Substance: FLUOROURACIL
     Indication: HER-2 POSITIVE BREAST CANCER
     Route: 065
     Dates: start: 201406, end: 20141126
  2. INDERAL [Concomitant]
     Active Substance: PROPRANOLOL HYDROCHLORIDE
     Route: 065
     Dates: start: 1994
  3. KEFLEX [Concomitant]
     Active Substance: CEPHALEXIN
     Route: 065
  4. PACLITAXEL. [Suspect]
     Active Substance: PACLITAXEL
     Indication: HER-2 POSITIVE BREAST CANCER
     Route: 065
     Dates: start: 201406, end: 20141126
  5. EPIRUBICIN [Suspect]
     Active Substance: EPIRUBICIN
     Indication: HER-2 POSITIVE BREAST CANCER
     Route: 065
     Dates: start: 201406, end: 20141126
  6. SYSTANE (HYPROMELLOSE 2910 (4000 MPA.S)) [Concomitant]
     Active Substance: HYPROMELLOSE 2910 (4000 MPA.S)
     Dosage: APPLY TO EYE. PRN
     Route: 065
  7. CYCLOPHOSPHAMIDE. [Suspect]
     Active Substance: CYCLOPHOSPHAMIDE
     Indication: HER-2 POSITIVE BREAST CANCER
     Route: 065
     Dates: start: 201406, end: 20141126
  8. EXCEDRIN [Concomitant]
     Active Substance: ACETAMINOPHEN\ASPIRIN\CAFFEINE
     Dosage: TAKE 2 TABLETS BY MOUTH AS NEEDED
     Route: 065
     Dates: start: 1994
  9. NEUPOGEN [Concomitant]
     Active Substance: FILGRASTIM
     Route: 065
  10. TRASTUZUMAB [Suspect]
     Active Substance: TRASTUZUMAB
     Indication: HER-2 POSITIVE BREAST CANCER
     Route: 065
     Dates: start: 201406, end: 20141126
  11. VALTREX [Concomitant]
     Active Substance: VALACYCLOVIR HYDROCHLORIDE
     Indication: HYPERSENSITIVITY
     Dosage: 1 TABLET BY MOUTH
     Route: 065
  12. PERTUZUMAB [Suspect]
     Active Substance: PERTUZUMAB
     Indication: HER-2 POSITIVE BREAST CANCER
     Route: 065
     Dates: start: 201406, end: 20141126
  13. COMPAZINE [Concomitant]
     Active Substance: PROCHLORPERAZINE MALEATE
     Route: 065
  14. NEUPOGEN [Concomitant]
     Active Substance: FILGRASTIM
     Route: 065

REACTIONS (2)
  - Device related infection [Unknown]
  - Embolism [Unknown]

NARRATIVE: CASE EVENT DATE: 20140820
